FAERS Safety Report 9186661 (Version 5)
Quarter: 2014Q2

REPORT INFORMATION
  Report Type: Report from Study
  Country: GB (occurrence: GB)
  Receive Date: 20130325
  Receipt Date: 20140411
  Transmission Date: 20141212
  Serious: Yes (Hospitalization, Disabling)
  Sender: FDA-Public Use
  Company Number: GB-CELGENEUS-167-21880-13021775

PATIENT
  Age: 47 Year
  Sex: Male
  Weight: 63 kg

DRUGS (3)
  1. REVLIMID [Suspect]
     Indication: PLASMA CELL MYELOMA
     Dosage: 10 MILLIGRAM
     Route: 048
     Dates: start: 20130110
  2. VORINOSTAT [Suspect]
     Indication: PLASMA CELL MYELOMA
     Route: 048
     Dates: start: 20130110, end: 20130130
  3. THALIDOMIDE [Suspect]
     Indication: PLASMA CELL MYELOMA
     Route: 048
     Dates: start: 20120321

REACTIONS (3)
  - Pulmonary mass [Recovered/Resolved]
  - Neutropenic sepsis [Recovered/Resolved]
  - Varicella [Recovered/Resolved]
